FAERS Safety Report 25140045 (Version 1)
Quarter: 2025Q1

REPORT INFORMATION
  Report Type: Spontaneous
  Country: AT (occurrence: AT)
  Receive Date: 20250331
  Receipt Date: 20250331
  Transmission Date: 20250409
  Serious: Yes (Disabling)
  Sender: NOVARTIS
  Company Number: AT-002147023-NVSC2025AT051689

PATIENT
  Sex: Female

DRUGS (1)
  1. GILENYA [Suspect]
     Active Substance: FINGOLIMOD HYDROCHLORIDE
     Indication: Product used for unknown indication
     Route: 065
     Dates: end: 20250318

REACTIONS (1)
  - Disease progression [Unknown]
